FAERS Safety Report 9416594 (Version 2)
Quarter: 2013Q3

REPORT INFORMATION
  Report Type: Spontaneous
  Country: US (occurrence: None)
  Receive Date: 20130719
  Receipt Date: 20130925
  Transmission Date: 20140515
  Serious: Yes (Life-Threatening, Other)
  Sender: FDA-Public Use
  Company Number: ACO_37268_2013

PATIENT
  Sex: Male
  Weight: 97.5 kg

DRUGS (2)
  1. AMPYRA [Suspect]
     Indication: GAIT DISTURBANCE
     Route: 048
     Dates: start: 201306, end: 20130705
  2. REBIF (INTERFERON BETA-1A) [Concomitant]

REACTIONS (5)
  - Suicidal ideation [None]
  - Personality change [None]
  - Abnormal dreams [None]
  - Belligerence [None]
  - Headache [None]
